FAERS Safety Report 9426412 (Version 1)
Quarter: 2013Q3

REPORT INFORMATION
  Report Type: Spontaneous
  Country: FR (occurrence: FR)
  Receive Date: 20130730
  Receipt Date: 20130730
  Transmission Date: 20140515
  Serious: Yes (Life-Threatening)
  Sender: FDA-Public Use
  Company Number: FR-INCYTE CORPORATION-2013IN001613

PATIENT
  Age: 58 Year
  Sex: Male

DRUGS (2)
  1. JAKAVI [Suspect]
     Indication: MYELOFIBROSIS
     Dosage: 35 MG, QD (1 TABLET OF JAKAVI 20 MG AND 1 TABLET OF JAKAVI 15 MG)
     Route: 048
  2. JAKAVI [Suspect]
     Dosage: 35 MG, QD (EQUIVALENT DOSAGE WITH 4 TABLETS OF 5 MG)
     Route: 048

REACTIONS (1)
  - Asphyxia [Recovered/Resolved]
